FAERS Safety Report 13277061 (Version 1)
Quarter: 2017Q1

REPORT INFORMATION
  Report Type: Other
  Country: BR (occurrence: BR)
  Receive Date: 20170228
  Receipt Date: 20170228
  Transmission Date: 20170428
  Serious: Yes (Other)
  Sender: FDA-Public Use
  Company Number: BR-B. BRAUN MEDICAL INC.-1063670

PATIENT
  Age: 41 Year
  Sex: Female

DRUGS (1)
  1. MANNITOL. [Suspect]
     Active Substance: MANNITOL

REACTIONS (7)
  - Vision blurred [Unknown]
  - Product use issue [Unknown]
  - Ear discomfort [None]
  - Carbohydrate metabolism disorder [Unknown]
  - Deafness [None]
  - Rhinitis allergic [Unknown]
  - Vestibular disorder [Unknown]
